FAERS Safety Report 9224502 (Version 1)
Quarter: 2013Q2

REPORT INFORMATION
  Report Type: Spontaneous
  Country: US (occurrence: None)
  Receive Date: 20130409
  Receipt Date: 20130409
  Transmission Date: 20140414
  Serious: Yes (Life-Threatening)
  Sender: FDA-Public Use
  Company Number: None

PATIENT
  Age: 42 Year
  Sex: Female
  Weight: 89 kg

DRUGS (2)
  1. ONDANSETRON [Suspect]
     Route: 048
     Dates: start: 20121128, end: 20130316
  2. ONDANSETRON [Suspect]
     Route: 040

REACTIONS (3)
  - Ventricular extrasystoles [None]
  - Torsade de pointes [None]
  - Loss of consciousness [None]
